FAERS Safety Report 10949206 (Version 1)
Quarter: 2015Q1

REPORT INFORMATION
  Report Type: Spontaneous
  Country: US (occurrence: US)
  Receive Date: 20150324
  Receipt Date: 20150324
  Transmission Date: 20150721
  Serious: No
  Sender: FDA-Public Use
  Company Number: US-ASTRAZENECA-2015SE23869

PATIENT
  Age: 68 Year
  Sex: Female
  Weight: 65.8 kg

DRUGS (3)
  1. ENTOCORT EC [Suspect]
     Active Substance: BUDESONIDE
     Indication: COELIAC DISEASE
     Route: 048
     Dates: start: 2009
  2. BENTYL [Concomitant]
     Active Substance: DICYCLOMINE HYDROCHLORIDE
  3. ENTOCORT EC [Suspect]
     Active Substance: BUDESONIDE
     Indication: COELIAC DISEASE
     Dosage: 3 MG EVERY OTHER DAY.
     Route: 048
     Dates: start: 20141119

REACTIONS (4)
  - Off label use [Recovered/Resolved]
  - Vertigo [Not Recovered/Not Resolved]
  - Abdominal pain upper [Unknown]
  - Dizziness [Not Recovered/Not Resolved]

NARRATIVE: CASE EVENT DATE: 2009
